FAERS Safety Report 21520005 (Version 1)
Quarter: 2022Q4

REPORT INFORMATION
  Report Type: Spontaneous
  Country: US (occurrence: US)
  Receive Date: 20221028
  Receipt Date: 20221028
  Transmission Date: 20230113
  Serious: No
  Sender: FDA-Public Use
  Company Number: US-FreseniusKabi-FK202214310

PATIENT

DRUGS (1)
  1. XYLOCAINE-MPF [Suspect]
     Active Substance: LIDOCAINE HYDROCHLORIDE
     Indication: Bioptic eye surgery
     Route: 056
     Dates: start: 20221018

REACTIONS (2)
  - Pain [Unknown]
  - Drug ineffective [Unknown]

NARRATIVE: CASE EVENT DATE: 20221018
